FAERS Safety Report 21251355 (Version 2)
Quarter: 2023Q4

REPORT INFORMATION
  Report Type: Spontaneous
  Country: FR (occurrence: FR)
  Receive Date: 20220825
  Receipt Date: 20231016
  Transmission Date: 20240110
  Serious: Yes (Other)
  Sender: FDA-Public Use
  Company Number: FR-AFSSAPS-LY20223768

PATIENT
  Age: 61 Year
  Sex: Male
  Weight: 71 kg

DRUGS (3)
  1. ATORVASTATIN [Suspect]
     Active Substance: ATORVASTATIN
     Indication: Product used for unknown indication
     Dosage: ATORVASTATINE 80 MG : 27 OCT - 13 DEC ATORVASTATINE 40 MG: 7 JAN - (18 JANVIER) PANTOPRAZOLE
     Route: 048
     Dates: start: 20211027, end: 20220118
  2. PANTOPRAZOLE [Suspect]
     Active Substance: PANTOPRAZOLE
     Indication: Product used for unknown indication
     Dosage: PANTOPRAZOLE 40 MG : 2 - 22 NOV 5 - 12 JANVIER PANTOPRAZOLE 20 MG : 2 - 16 JANVIER
     Route: 048
     Dates: start: 20211102, end: 20220116
  3. LANSOPRAZOLE [Suspect]
     Active Substance: LANSOPRAZOLE
     Indication: Product used for unknown indication
     Dosage: LANSOPRAZOLE 15 MG (4/DAY): 27 OCT - 2 NOV LANSOPRAZOLE 15 MG (1/DAY): 22 NOV - 16 DEC
     Route: 048
     Dates: start: 20211027, end: 20211216

REACTIONS (1)
  - Hepatic cytolysis [Unknown]

NARRATIVE: CASE EVENT DATE: 20211101
